FAERS Safety Report 21816433 (Version 1)
Quarter: 2023Q1

REPORT INFORMATION
  Report Type: Spontaneous
  Country: US (occurrence: None)
  Receive Date: 20230103
  Receipt Date: 20230103
  Transmission Date: 20230418
  Serious: Yes (unspecified)
  Sender: FDA-Public Use
  Company Number: None

PATIENT
  Age: 47 Year
  Sex: Female
  Weight: 78.3 kg

DRUGS (22)
  1. DULOXETINE HYDROCHLORIDE [Suspect]
     Active Substance: DULOXETINE HYDROCHLORIDE
     Indication: Anxiety
     Dosage: FREQUENCY : DAILY;?
     Route: 048
     Dates: start: 20221205, end: 20221222
  2. LEVOTHYROXINE SODIUM [Concomitant]
     Active Substance: LEVOTHYROXINE SODIUM
  3. LIOTHYRONINE [Concomitant]
     Active Substance: LIOTHYRONINE
  4. PROGESTERONE [Concomitant]
     Active Substance: PROGESTERONE
  5. ZYRTEC [Concomitant]
     Active Substance: CETIRIZINE HYDROCHLORIDE
  6. PROBIOTICS NOS [Concomitant]
     Active Substance: PROBIOTICS NOS
  7. The Big One Multi vit [Concomitant]
  8. Fiber from Flax Seeds [Concomitant]
  9. PHOSPHATIDYL SERINE [Concomitant]
     Active Substance: PHOSPHATIDYL SERINE
  10. Histamine Enzyme [Concomitant]
  11. BETAINE HCL [Concomitant]
  12. VITAMIN C [Concomitant]
     Active Substance: ASCORBIC ACID
  13. FISH OIL [Concomitant]
     Active Substance: FISH OIL
  14. DIM [Concomitant]
  15. Calcium D-Glucarate [Concomitant]
  16. Deluxe Scavengers [Concomitant]
  17. GINGER [Concomitant]
     Active Substance: GINGER
  18. Hystaeze [Concomitant]
  19. ProBiota Rhamnosus [Concomitant]
  20. UNDECYN [Concomitant]
  21. Pro-Dental [Concomitant]
  22. Metabolic Maint Prebiotic powder [Concomitant]

REACTIONS (12)
  - Pain [None]
  - Tongue thrust [None]
  - Malocclusion [None]
  - Oral pain [None]
  - Poor quality sleep [None]
  - Hypophagia [None]
  - Sinus disorder [None]
  - Musculoskeletal stiffness [None]
  - Paraesthesia [None]
  - Nonspecific reaction [None]
  - Anxiety [None]
  - Stress [None]

NARRATIVE: CASE EVENT DATE: 20221222
